FAERS Safety Report 8202524-8 (Version None)
Quarter: 2012Q1

REPORT INFORMATION
  Report Type: 
  Country: None (occurrence: None)
  Receive Date: 20120312
  Receipt Date: 20120302
  Transmission Date: 20120608
  Serious: Yes (Life-Threatening, Hospitalization)
  Sender: FDA-Public Use
  Company Number: DE-JNJFOC-20120211530

PATIENT
  Sex: Female
  Weight: 70 kg

DRUGS (6)
  1. RAMIPRIL [Concomitant]
  2. LERCANIDIPINE [Concomitant]
  3. LEVOTHYROXINE SODIUM [Concomitant]
  4. ENOXAPARIN SODIUM [Concomitant]
     Dosage: WEIGHT ADAPTED TREATMENT
     Dates: end: 20120214
  5. XARELTO [Suspect]
     Indication: ATRIAL FIBRILLATION
     Route: 048
     Dates: start: 20120215
  6. METOPROLOL SUCCINATE [Concomitant]

REACTIONS (1)
  - EMBOLIC STROKE [None]
